FAERS Safety Report 7379290-1 (Version None)
Quarter: 2011Q1

REPORT INFORMATION
  Report Type: 
  Country: None (occurrence: None)
  Receive Date: 20110329
  Receipt Date: 20110125
  Transmission Date: 20110831
  Serious: Yes (Death, Hospitalization, Other)
  Sender: FDA-Public Use
  Company Number: US-AMGEN-US338947

PATIENT
  Age: 83 Year
  Sex: Male

DRUGS (2)
  1. NPLATE [Suspect]
     Indication: IDIOPATHIC THROMBOCYTOPENIC PURPURA
     Dosage: 525 A?G, UNK
     Route: 065
     Dates: start: 20081216, end: 20090224
  2. NPLATE [Suspect]
     Dates: start: 20081216, end: 20090303

REACTIONS (11)
  - FATIGUE [None]
  - ANAEMIA [None]
  - BACK PAIN [None]
  - THERAPEUTIC RESPONSE DECREASED [None]
  - ACUTE MYELOID LEUKAEMIA [None]
  - DYSURIA [None]
  - DECREASED APPETITE [None]
  - WEIGHT DECREASED [None]
  - THROMBOCYTOPENIA [None]
  - CLUSTER HEADACHE [None]
  - HEPATORENAL SYNDROME [None]
